FAERS Safety Report 19488230 (Version 2)
Quarter: 2021Q3

REPORT INFORMATION
  Report Type: Spontaneous
  Country: US (occurrence: US)
  Receive Date: 20210702
  Receipt Date: 20210927
  Transmission Date: 20211014
  Serious: No
  Sender: FDA-Public Use
  Company Number: US-BIOCRYST-2021BCR00169

PATIENT
  Sex: Female

DRUGS (27)
  1. AJOVY [Concomitant]
     Active Substance: FREMANEZUMAB-VFRM
  2. AMITRIPTYLINE [Concomitant]
     Active Substance: AMITRIPTYLINE
  3. CEVIMELINE. [Concomitant]
     Active Substance: CEVIMELINE
  4. CLONIDINE. [Concomitant]
     Active Substance: CLONIDINE
  5. EPIPEN [Concomitant]
     Active Substance: EPINEPHRINE
  6. PROPRANOLOL [Concomitant]
     Active Substance: PROPRANOLOL HYDROCHLORIDE
  7. FIORICET [Concomitant]
     Active Substance: ACETAMINOPHEN\BUTALBITAL\CAFFEINE
  8. MELATONIN [Concomitant]
     Active Substance: MELATONIN
  9. SPRIX [Concomitant]
     Active Substance: KETOROLAC TROMETHAMINE
  10. COLACE [Concomitant]
     Active Substance: DOCUSATE SODIUM
  11. KALBITOR [Concomitant]
     Active Substance: ECALLANTIDE
  12. HYDROCODONE BITARTRATE AND ACETAMINOPHEN [Concomitant]
     Active Substance: ACETAMINOPHEN\HYDROCODONE BITARTRATE
  13. PRAVASTATIN. [Concomitant]
     Active Substance: PRAVASTATIN
  14. GABAPENTIN. [Concomitant]
     Active Substance: GABAPENTIN
  15. LISINOPRIL AND HYDROCHLOROTHIAZIDE [Concomitant]
     Active Substance: HYDROCHLOROTHIAZIDE\LISINOPRIL
  16. PLAVIX [Concomitant]
     Active Substance: CLOPIDOGREL BISULFATE
  17. LINZESS [Concomitant]
     Active Substance: LINACLOTIDE
  18. MOTEGRITY [Concomitant]
     Active Substance: PRUCALOPRIDE SUCCINATE
  19. WELLBUTRIN [Concomitant]
     Active Substance: BUPROPION HYDROCHLORIDE
  20. ZIAC [Concomitant]
     Active Substance: BISOPROLOL FUMARATE\HYDROCHLOROTHIAZIDE
  21. TAKHZYRO [Concomitant]
     Active Substance: LANADELUMAB-FLYO
  22. ORLADEYO [Suspect]
     Active Substance: BEROTRALSTAT HYDROCHLORIDE
     Indication: HEREDITARY ANGIOEDEMA
     Dosage: 150 MG, 1X/DAY
     Route: 048
     Dates: start: 2021, end: 2021
  23. ORLADEYO [Suspect]
     Active Substance: BEROTRALSTAT HYDROCHLORIDE
     Indication: HEREDITARY ANGIOEDEMA
     Dosage: 110 MG, 1X/DAY
     Route: 048
     Dates: start: 2021
  24. CITALOPRAM [Concomitant]
     Active Substance: CITALOPRAM HYDROBROMIDE
  25. FIRAZYR [Concomitant]
     Active Substance: ICATIBANT ACETATE
  26. MACRODANTIN [Concomitant]
     Active Substance: NITROFURANTOIN
  27. ZOFRAN [Concomitant]
     Active Substance: ONDANSETRON HYDROCHLORIDE

REACTIONS (5)
  - Headache [Not Recovered/Not Resolved]
  - Vomiting [Not Recovered/Not Resolved]
  - Drug ineffective [Not Recovered/Not Resolved]
  - Diarrhoea [Not Recovered/Not Resolved]
  - Abdominal pain upper [Not Recovered/Not Resolved]

NARRATIVE: CASE EVENT DATE: 2021
